FAERS Safety Report 8238040-7 (Version None)
Quarter: 2012Q1

REPORT INFORMATION
  Report Type: 
  Country: None (occurrence: None)
  Receive Date: 20120327
  Receipt Date: 20120316
  Transmission Date: 20120608
  Serious: Yes (Other)
  Sender: FDA-Public Use
  Company Number: AU-VIIV HEALTHCARE LIMITED-A0942757B

PATIENT
  Age: 39 Year
  Sex: Female

DRUGS (4)
  1. LAMIVUDINE + ZIDOVUDINE [Suspect]
     Indication: ANTIVIRAL TREATMENT
     Route: 048
  2. FUZEON [Suspect]
     Indication: ANTIVIRAL TREATMENT
     Route: 048
  3. ZIDOVUDINE [Suspect]
     Indication: ANTIVIRAL TREATMENT
     Route: 048
  4. ISENTRESS [Suspect]
     Indication: ANTIVIRAL TREATMENT
     Route: 048

REACTIONS (3)
  - MATERNAL EXPOSURE DURING PREGNANCY [None]
  - PREMATURE RUPTURE OF MEMBRANES [None]
  - PREMATURE BABY [None]
